FAERS Safety Report 12489611 (Version 2)
Quarter: 2016Q2

REPORT INFORMATION
  Report Type: Spontaneous
  Country: IN (occurrence: IN)
  Receive Date: 20160622
  Receipt Date: 20160622
  Transmission Date: 20160815
  Serious: Yes (Other)
  Sender: FDA-Public Use
  Company Number: IN-ACTAVIS-2016-12860

PATIENT
  Sex: Male

DRUGS (2)
  1. FINASTERIDE (UNKNOWN) [Suspect]
     Active Substance: FINASTERIDE
     Indication: ANDROGENETIC ALOPECIA
     Dosage: 1 MG, DAILY
     Route: 065
     Dates: start: 201410
  2. DUTASTERIDE (UNKNOWN) [Suspect]
     Active Substance: DUTASTERIDE
     Indication: ANDROGENETIC ALOPECIA
     Dosage: 0.5 MG, DAILY
     Route: 065
     Dates: start: 201001

REACTIONS (5)
  - Rash [Not Recovered/Not Resolved]
  - Dysuria [Not Recovered/Not Resolved]
  - Abdominal discomfort [Not Recovered/Not Resolved]
  - Seborrhoea [Not Recovered/Not Resolved]
  - Pruritus generalised [Not Recovered/Not Resolved]
